FAERS Safety Report 6470088-5 (Version None)
Quarter: 2009Q4

REPORT INFORMATION
  Report Type: 
  Country: None (occurrence: None)
  Receive Date: 20091203
  Receipt Date: 20091124
  Transmission Date: 20100525
  Serious: Yes (Other)
  Sender: FDA-Public Use
  Company Number: US-PFIZER INC-2009302985

PATIENT
  Sex: Male
  Weight: 73.016 kg

DRUGS (5)
  1. ZITHROMAX [Suspect]
     Indication: PNEUMONIA
     Dosage: UNK
     Route: 048
     Dates: start: 20080711, end: 20080717
  2. RITALIN [Concomitant]
     Indication: EPILEPSY
     Dosage: 10 MG 2X/DAY
     Route: 048
  3. HYTRIN [Concomitant]
     Indication: PROSTATIC DISORDER
     Route: 048
  4. ACETYLSALICYLIC ACID [Concomitant]
  5. LIPITOR [Concomitant]

REACTIONS (2)
  - SKIN REACTION [None]
  - TRANSIENT ACANTHOLYTIC DERMATOSIS [None]
